FAERS Safety Report 9994797 (Version 5)
Quarter: 2025Q4

REPORT INFORMATION
  Report Type: Spontaneous
  Country: EU (occurrence: EU)
  Receive Date: 20140311
  Receipt Date: 20251107
  Transmission Date: 20260118
  Serious: Yes (Other)
  Sender: NOVARTIS
  Company Number: PHHY2014DE026544

PATIENT
  Age: 18 Year
  Sex: Male

DRUGS (18)
  1. DEXAMETHASONE [Suspect]
     Active Substance: DEXAMETHASONE
     Indication: Factor VIII inhibition
     Dosage: UNK
     Route: 065
  2. DEXAMETHASONE [Suspect]
     Active Substance: DEXAMETHASONE
     Indication: Immune tolerance induction
     Dosage: 24 MG/M2, QD (DAY 1-4)
     Route: 065
  3. DEXAMETHASONE [Suspect]
     Active Substance: DEXAMETHASONE
     Indication: Acquired haemophilia
  4. CYCLOSPORINE [Suspect]
     Active Substance: CYCLOSPORINE
     Indication: Factor VIII inhibition
     Dosage: UNK
     Route: 065
  5. CYCLOSPORINE [Suspect]
     Active Substance: CYCLOSPORINE
     Indication: Acquired haemophilia
  6. RITUXIMAB [Suspect]
     Active Substance: RITUXIMAB
     Indication: Factor VIII inhibition
     Dosage: UNK
     Route: 065
  7. RITUXIMAB [Suspect]
     Active Substance: RITUXIMAB
     Indication: Immune tolerance induction
     Dosage: 375 MG/M2, QD (WEEKLY)
     Route: 065
  8. RITUXIMAB [Suspect]
     Active Substance: RITUXIMAB
     Indication: Acquired haemophilia
  9. CAMPATH [Suspect]
     Active Substance: ALEMTUZUMAB
     Indication: Factor VIII inhibition
     Dosage: UNK
     Route: 065
  10. CAMPATH [Suspect]
     Active Substance: ALEMTUZUMAB
     Indication: Acquired haemophilia
  11. CELLCEPT [Suspect]
     Active Substance: MYCOPHENOLATE MOFETIL
     Indication: Factor VIII inhibition
     Dosage: 600 MG/M2, QD
     Route: 065
  12. CELLCEPT [Suspect]
     Active Substance: MYCOPHENOLATE MOFETIL
     Indication: Immune tolerance induction
     Dosage: 600 MG/M2, QD
     Route: 065
  13. CELLCEPT [Suspect]
     Active Substance: MYCOPHENOLATE MOFETIL
     Indication: Acquired haemophilia
  14. ANTIHEMOPHILIC FACTOR, HUMAN RECOMBINANT [Suspect]
     Active Substance: ANTIHEMOPHILIC FACTOR, HUMAN RECOMBINANT
     Indication: Acquired haemophilia
     Dosage: UNK
     Route: 065
  15. ANTIHEMOPHILIC FACTOR HUMAN [Suspect]
     Active Substance: ANTIHEMOPHILIC FACTOR HUMAN
     Indication: Anti factor VIII antibody test
     Dosage: UNK
     Route: 065
  16. ANTIHEMOPHILIC FACTOR HUMAN [Suspect]
     Active Substance: ANTIHEMOPHILIC FACTOR HUMAN
     Indication: Immune tolerance induction
     Dosage: UNK (2X100 U/KG/D, 2X50U/KG/D RESP)
     Route: 065
  17. ANTIHEMOPHILIC FACTOR HUMAN [Suspect]
     Active Substance: ANTIHEMOPHILIC FACTOR HUMAN
     Indication: Acquired haemophilia
  18. HUMAN IMMUNOGLOBULIN G [Suspect]
     Active Substance: HUMAN IMMUNOGLOBULIN G
     Indication: Immune tolerance induction
     Dosage: UNK
     Route: 065

REACTIONS (14)
  - Obesity [Unknown]
  - Condition aggravated [Unknown]
  - Psychotic disorder [Unknown]
  - Sepsis [Unknown]
  - Paronychia [Unknown]
  - Skin infection [Unknown]
  - Agranulocytosis [Recovered/Resolved]
  - Cytomegalovirus infection reactivation [Recovered/Resolved]
  - Pneumonia [Unknown]
  - Rebound effect [Unknown]
  - Factor VIII inhibition [Recovering/Resolving]
  - Drug ineffective for unapproved indication [Unknown]
  - Drug ineffective [Unknown]
  - Off label use [Unknown]
